FAERS Safety Report 9973190 (Version 2)
Quarter: 2014Q1

REPORT INFORMATION
  Report Type: Report from Study
  Country: US (occurrence: US)
  Receive Date: 20140306
  Receipt Date: 20140306
  Transmission Date: 20141002
  Serious: Yes (Other)
  Sender: FDA-Public Use
  Company Number: US-ABBVIE-13P-163-1138624-00

PATIENT
  Age: 59 Year
  Sex: Male
  Weight: 65.83 kg

DRUGS (3)
  1. HUMIRA [Suspect]
     Indication: PSORIATIC ARTHROPATHY
     Route: 058
     Dates: start: 201308
  2. MICARDIS [Concomitant]
     Indication: HYPERTENSION
  3. ADVIL [Concomitant]
     Indication: PAIN

REACTIONS (2)
  - Basal cell carcinoma [Not Recovered/Not Resolved]
  - Rash macular [Not Recovered/Not Resolved]
